FAERS Safety Report 25573974 (Version 2)
Quarter: 2025Q3

REPORT INFORMATION
  Report Type: Spontaneous
  Country: CO (occurrence: CO)
  Receive Date: 20250717
  Receipt Date: 20250725
  Transmission Date: 20251020
  Serious: Yes (Death, Hospitalization, Other)
  Sender: EISAI
  Company Number: CO-Eisai Medical Research-EC-2023-146889

PATIENT
  Age: 65 Year
  Sex: Female

DRUGS (5)
  1. LENVATINIB [Suspect]
     Active Substance: LENVATINIB
     Indication: Papillary thyroid cancer
     Dates: start: 20220208, end: 20220420
  2. LENVATINIB [Suspect]
     Active Substance: LENVATINIB
     Dates: start: 20220617, end: 2022
  3. LENVATINIB [Suspect]
     Active Substance: LENVATINIB
     Dates: start: 202208
  4. LENVATINIB [Suspect]
     Active Substance: LENVATINIB
     Dates: start: 20221212
  5. LENVATINIB [Suspect]
     Active Substance: LENVATINIB
     Dates: start: 20240123

REACTIONS (5)
  - Sepsis [Fatal]
  - Pneumonia [Unknown]
  - Pleural effusion [Fatal]
  - Posterior reversible encephalopathy syndrome [Recovered/Resolved]
  - Diarrhoea [Recovering/Resolving]

NARRATIVE: CASE EVENT DATE: 20220401
